FAERS Safety Report 7422221-6 (Version None)
Quarter: 2011Q2

REPORT INFORMATION
  Report Type: 
  Country: None (occurrence: None)
  Receive Date: 20110418
  Receipt Date: 20110406
  Transmission Date: 20111010
  Serious: Yes (Other)
  Sender: FDA-Public Use
  Company Number: SG-BAYER-2011-030750

PATIENT
  Age: 55 Year
  Sex: Female

DRUGS (1)
  1. CIPROBAY 250 TABLET 250 MG [Suspect]

REACTIONS (1)
  - EYE SWELLING [None]
